FAERS Safety Report 7213444-X (Version None)
Quarter: 2011Q1

REPORT INFORMATION
  Report Type: 
  Country: None (occurrence: None)
  Receive Date: 20110106
  Receipt Date: 20110104
  Transmission Date: 20110831
  Serious: Yes (Hospitalization)
  Sender: FDA-Public Use
  Company Number: US-MEDIMMUNE-MEDI-0011817

PATIENT
  Sex: Male

DRUGS (1)
  1. FLUMIST [Suspect]
     Dates: start: 20101115, end: 20101115

REACTIONS (2)
  - MUSCLE INJURY [None]
  - BACTERIAL INFECTION [None]
